FAERS Safety Report 11450265 (Version 1)
Quarter: 2015Q3

REPORT INFORMATION
  Report Type: Spontaneous
  Country: US (occurrence: US)
  Receive Date: 20150903
  Receipt Date: 20150903
  Transmission Date: 20151125
  Serious: No
  Sender: FDA-Public Use
  Company Number: US-ROCHE-1074883

PATIENT
  Sex: Male

DRUGS (2)
  1. PEGASYS [Suspect]
     Active Substance: PEGINTERFERON ALFA-2A
     Indication: HEPATITIS C
     Route: 065
     Dates: start: 20110408, end: 20110922
  2. RIBAVIRIN. [Suspect]
     Active Substance: RIBAVIRIN
     Indication: HEPATITIS C
     Route: 065
     Dates: start: 20110408, end: 20110922

REACTIONS (9)
  - Oesophagitis [Unknown]
  - Pain [Unknown]
  - Oesophageal disorder [Unknown]
  - Faeces discoloured [Unknown]
  - Hangover [Unknown]
  - Decreased appetite [Unknown]
  - Muscle twitching [Unknown]
  - Muscular weakness [Unknown]
  - Abdominal pain upper [Unknown]
